FAERS Safety Report 7363668-6 (Version None)
Quarter: 2011Q1

REPORT INFORMATION
  Report Type: 
  Country: None (occurrence: None)
  Receive Date: 20110321
  Receipt Date: 20110308
  Transmission Date: 20110831
  Serious: Yes (Other)
  Sender: FDA-Public Use
  Company Number: CA-JNJFOC-20100707558

PATIENT
  Sex: Female
  Weight: 81.8 kg

DRUGS (10)
  1. REMICADE [Suspect]
     Indication: CROHN'S DISEASE
     Route: 042
  2. REMICADE [Suspect]
     Route: 042
  3. REMICADE [Suspect]
     Route: 042
  4. REMICADE [Suspect]
     Route: 042
  5. REMICADE [Suspect]
     Route: 042
  6. REMICADE [Suspect]
     Route: 042
  7. REMICADE [Suspect]
     Route: 042
  8. REMICADE [Suspect]
     Route: 042
  9. CYCLOBENZAPRINE [Concomitant]
  10. LORAZEPAM [Concomitant]
     Dosage: AS NECESSARY

REACTIONS (5)
  - THORACIC VERTEBRAL FRACTURE [None]
  - FALL [None]
  - CARTILAGE INJURY [None]
  - JOINT SPRAIN [None]
  - ARTHROPATHY [None]
